FAERS Safety Report 5857774-2 (Version None)
Quarter: 2008Q3

REPORT INFORMATION
  Report Type: 
  Country: None (occurrence: None)
  Receive Date: 20080826
  Receipt Date: 20080818
  Transmission Date: 20090109
  Serious: Yes (Hospitalization)
  Sender: FDA-Public Use
  Company Number: FR-WYE-H05628908

PATIENT
  Sex: Male

DRUGS (14)
  1. INIPOMP [Suspect]
     Route: 048
     Dates: start: 20080411, end: 20080420
  2. OFLOCET [Suspect]
     Indication: BRONCHITIS
     Route: 048
     Dates: start: 20080419, end: 20080420
  3. COVERSYL [Suspect]
     Indication: MYOCARDIAL INFARCTION
     Route: 048
     Dates: start: 20080410, end: 20080420
  4. AUGMENTIN '125' [Suspect]
     Indication: BRONCHITIS
     Route: 042
     Dates: start: 20080416, end: 20080420
  5. PERFALGAN [Concomitant]
     Dosage: UNKNOWN
     Route: 042
     Dates: start: 20080416, end: 20080416
  6. ASPIRIN [Concomitant]
     Indication: MYOCARDIAL INFARCTION
     Dosage: UNKNOWN
     Route: 048
  7. TOPLEXIL [Concomitant]
     Dosage: UNKNOWN
     Route: 048
  8. RULID [Concomitant]
     Dosage: UNKNOWN
     Route: 048
     Dates: start: 20080420, end: 20080425
  9. BISOPROLOL FUMARATE [Concomitant]
     Dosage: UNKNOWN
     Route: 048
     Dates: start: 20080410, end: 20080420
  10. BISOPROLOL FUMARATE [Concomitant]
     Dosage: UNKNOWN
     Dates: start: 20080422
  11. CRESTOR [Concomitant]
     Dosage: UNKNOWN
     Route: 048
     Dates: start: 20080411, end: 20080420
  12. CRESTOR [Concomitant]
     Dosage: UNKNOWN
     Route: 048
     Dates: start: 20080422
  13. CALCIPARINE [Suspect]
     Route: 058
     Dates: start: 20080414, end: 20080420
  14. PLAVIX [Concomitant]
     Indication: MYOCARDIAL INFARCTION
     Dosage: UNKNOWN
     Dates: start: 20080411

REACTIONS (2)
  - AGRANULOCYTOSIS [None]
  - THROMBOCYTOPENIA [None]
